FAERS Safety Report 15639765 (Version 1)
Quarter: 2018Q4

REPORT INFORMATION
  Report Type: Spontaneous
  Country: RU (occurrence: RU)
  Receive Date: 20181120
  Receipt Date: 20181120
  Transmission Date: 20190205
  Serious: Yes (Other)
  Sender: FDA-Public Use
  Company Number: RU-SA-2018SA313953

PATIENT
  Age: 12 Year
  Sex: Female

DRUGS (10)
  1. CYCLOPHOSPHAMIDE. [Suspect]
     Active Substance: CYCLOPHOSPHAMIDE
     Dosage: 04 MG/KG
     Route: 065
  2. CYCLOPHOSPHAMIDE. [Suspect]
     Active Substance: CYCLOPHOSPHAMIDE
     Dosage: UNK MG/KG
     Route: 065
  3. FLUDARABINE [FLUDARABINE PHOSPHATE] [Concomitant]
     Indication: BONE MARROW CONDITIONING REGIMEN
  4. THYMOGLOBULIN [Suspect]
     Active Substance: LAPINE T-LYMPHOCYTE IMMUNE GLOBULIN
     Dosage: 04 MG/KG
     Route: 042
  5. MYLERAN [Suspect]
     Active Substance: BUSULFAN
     Indication: BONE MARROW CONDITIONING REGIMEN
     Dosage: 20 MG/KG
     Route: 065
  6. MYLERAN [Suspect]
     Active Substance: BUSULFAN
     Dosage: 04 MG/KG
     Route: 065
  7. THYMOGLOBULIN [Suspect]
     Active Substance: LAPINE T-LYMPHOCYTE IMMUNE GLOBULIN
     Dosage: UNK MG/KG
     Route: 042
  8. MYLERAN [Suspect]
     Active Substance: BUSULFAN
     Dosage: UNK MG/KG
     Route: 065
  9. THYMOGLOBULIN [Suspect]
     Active Substance: LAPINE T-LYMPHOCYTE IMMUNE GLOBULIN
     Indication: BONE MARROW CONDITIONING REGIMEN
     Dosage: 20 MG/KG
     Route: 042
  10. CYCLOPHOSPHAMIDE. [Suspect]
     Active Substance: CYCLOPHOSPHAMIDE
     Indication: BONE MARROW CONDITIONING REGIMEN
     Dosage: 20 MG/KG
     Route: 065

REACTIONS (2)
  - Drug ineffective [Unknown]
  - Transplant rejection [Unknown]
